FAERS Safety Report 6795561-1 (Version None)
Quarter: 2010Q2

REPORT INFORMATION
  Report Type: 
  Country: None (occurrence: None)
  Receive Date: 20100625
  Receipt Date: 20100616
  Transmission Date: 20101027
  Serious: Yes (Hospitalization, Other)
  Sender: FDA-Public Use
  Company Number: US-AMGEN-QUU418876

PATIENT
  Sex: Female

DRUGS (2)
  1. ENBREL [Suspect]
     Indication: RHEUMATOID ARTHRITIS
     Dates: start: 20050101
  2. METHOTREXATE [Concomitant]

REACTIONS (7)
  - ARTHRALGIA [None]
  - BLOOD PRESSURE INCREASED [None]
  - DEPRESSION [None]
  - HEPATIC ENZYME INCREASED [None]
  - OBESITY [None]
  - PSORIASIS [None]
  - SLEEP APNOEA SYNDROME [None]
